FAERS Safety Report 6415641-X (Version None)
Quarter: 2009Q4

REPORT INFORMATION
  Report Type: 
  Country: None (occurrence: None)
  Receive Date: 20091027
  Receipt Date: 20091015
  Transmission Date: 20100525
  Serious: Yes (Other)
  Sender: FDA-Public Use
  Company Number: FI-ROCHE-663368

PATIENT
  Age: 68 Year
  Sex: Female

DRUGS (2)
  1. CAPECITABINE [Suspect]
     Route: 048
     Dates: start: 20080101
  2. CAPECITABINE [Suspect]
     Route: 048
     Dates: end: 20090501

REACTIONS (2)
  - ADVERSE EVENT [None]
  - MALIGNANT NEOPLASM PROGRESSION [None]
